FAERS Safety Report 5013446-8 (Version None)
Quarter: 2006Q2

REPORT INFORMATION
  Report Type: 
  Country: None (occurrence: None)
  Receive Date: 20060525
  Receipt Date: 20060525
  Transmission Date: 20061013
  Serious: Yes (Life-Threatening)
  Sender: FDA-Public Use
  Company Number: None

PATIENT
  Age: 81 Year
  Sex: Female
  Weight: 72.5755 kg

DRUGS (1)
  1. CELEBREX [Suspect]
     Indication: ARTHRITIS
     Dosage: 1 DAILY PO
     Route: 048
     Dates: start: 20041101, end: 20051001

REACTIONS (3)
  - CARDIAC DISORDER [None]
  - CARDIAC VALVE DISEASE [None]
  - RENAL DISORDER [None]
